FAERS Safety Report 12402540 (Version 1)
Quarter: 2016Q2

REPORT INFORMATION
  Report Type: Spontaneous
  Country: DK (occurrence: DK)
  Receive Date: 20160525
  Receipt Date: 20160525
  Transmission Date: 20160815
  Serious: Yes (Death, Hospitalization, Other)
  Sender: FDA-Public Use
  Company Number: DK-PFIZER INC-2016265237

PATIENT
  Age: 69 Year
  Sex: Male

DRUGS (4)
  1. MABTHERA [Suspect]
     Active Substance: RITUXIMAB
     Indication: FOLLICLE CENTRE LYMPHOMA, FOLLICULAR GRADE I, II, III
     Dosage: UNK
     Dates: start: 20121012, end: 20130429
  2. SENDOXAN [Suspect]
     Active Substance: CYCLOPHOSPHAMIDE
     Indication: FOLLICLE CENTRE LYMPHOMA, FOLLICULAR GRADE I, II, III
     Dosage: UNK
     Dates: start: 20121012, end: 20130125
  3. ADRIAMYCIN [Suspect]
     Active Substance: DOXORUBICIN HYDROCHLORIDE
     Indication: FOLLICLE CENTRE LYMPHOMA, FOLLICULAR GRADE I, II, III
     Dosage: UNK
     Dates: start: 20121012, end: 20130125
  4. ONCOVIN [Suspect]
     Active Substance: VINCRISTINE SULFATE
     Indication: FOLLICLE CENTRE LYMPHOMA, FOLLICULAR GRADE I, II, III
     Dosage: STRENGTH: 1 MG/ML.
     Dates: start: 20121012, end: 20130125

REACTIONS (20)
  - Oedema peripheral [Not Recovered/Not Resolved]
  - Asthenia [Not Recovered/Not Resolved]
  - Second primary malignancy [Unknown]
  - Cardiac failure [Fatal]
  - Hallucination [Unknown]
  - Follicle centre lymphoma, follicular grade I, II, III [Unknown]
  - Ejection fraction decreased [Fatal]
  - Dyspnoea [Not Recovered/Not Resolved]
  - Pneumonia [Recovered/Resolved]
  - Fatigue [Not Recovered/Not Resolved]
  - Basal cell carcinoma [Unknown]
  - Second primary malignancy [Unknown]
  - Disease progression [Unknown]
  - Feeling of body temperature change [Recovered/Resolved]
  - Squamous cell carcinoma [Unknown]
  - Ascites [Unknown]
  - Cardiomegaly [Fatal]
  - Pyrexia [Recovered/Resolved]
  - Pleural effusion [Unknown]
  - Decreased appetite [Unknown]

NARRATIVE: CASE EVENT DATE: 20130203
